FAERS Safety Report 12208864 (Version 1)
Quarter: 2016Q1

REPORT INFORMATION
  Report Type: Spontaneous
  Country: US (occurrence: US)
  Receive Date: 20160324
  Receipt Date: 20160324
  Transmission Date: 20160526
  Serious: Yes (Hospitalization)
  Sender: FDA-Public Use
  Company Number: US-ACTELION-A-US2016-133181

PATIENT
  Age: 71 Year
  Sex: Female
  Weight: 56.24 kg

DRUGS (11)
  1. LANTUS [Concomitant]
     Active Substance: INSULIN GLARGINE
  2. LOSARTAN. [Concomitant]
     Active Substance: LOSARTAN
  3. DIGOXIN. [Concomitant]
     Active Substance: DIGOXIN
  4. OMEPRAZOLE. [Concomitant]
     Active Substance: OMEPRAZOLE
  5. NOVOLOG [Concomitant]
     Active Substance: INSULIN ASPART
  6. ADCIRCA [Concomitant]
     Active Substance: TADALAFIL
  7. PRADAXA [Concomitant]
     Active Substance: DABIGATRAN ETEXILATE MESYLATE
  8. OPSUMIT [Suspect]
     Active Substance: MACITENTAN
     Indication: PULMONARY ARTERIAL HYPERTENSION
     Dosage: 10 MG, UNK
     Route: 048
     Dates: start: 20160129
  9. UPTRAVI [Suspect]
     Active Substance: SELEXIPAG
     Indication: PULMONARY ARTERIAL HYPERTENSION
     Dosage: 200 MCG, BID
     Route: 048
     Dates: start: 20160202, end: 20160223
  10. FUROSEMIDE. [Concomitant]
     Active Substance: FUROSEMIDE
  11. DONEPEZIL. [Concomitant]
     Active Substance: DONEPEZIL

REACTIONS (2)
  - Weight increased [Recovering/Resolving]
  - Fluid retention [Recovering/Resolving]

NARRATIVE: CASE EVENT DATE: 20160202
